FAERS Safety Report 13210241 (Version 1)
Quarter: 2017Q1

REPORT INFORMATION
  Report Type: Spontaneous
  Country: US (occurrence: US)
  Receive Date: 20170209
  Receipt Date: 20170209
  Transmission Date: 20170428
  Serious: No
  Sender: FDA-Public Use
  Company Number: US-ALLERGAN-1601779US

PATIENT
  Age: 60 Year
  Sex: Female

DRUGS (12)
  1. JUVEDERM ULTRA XC [Concomitant]
     Active Substance: HYALURONIC ACID\LIDOCAINE HYDROCHLORIDE
     Indication: SKIN WRINKLING
     Dosage: ONE SYRINGE
     Route: 030
     Dates: start: 20150701, end: 20150701
  2. BOTOX [Suspect]
     Active Substance: ONABOTULINUMTOXINA
     Dosage: 6 UNITS, SINGLE
     Route: 030
     Dates: start: 20150716, end: 20150716
  3. TRETINOIN. [Concomitant]
     Active Substance: TRETINOIN
  4. BOTOX [Suspect]
     Active Substance: ONABOTULINUMTOXINA
     Indication: PRODUCT USED FOR UNKNOWN INDICATION
     Dosage: 20 UNITS, SINGLE
     Route: 030
     Dates: start: 20151207, end: 20151207
  5. BOTOX [Suspect]
     Active Substance: ONABOTULINUMTOXINA
     Dosage: 53 UNITS, SINGLE
     Route: 030
     Dates: start: 20160303, end: 20160303
  6. BOTOX [Suspect]
     Active Substance: ONABOTULINUMTOXINA
     Dosage: UNK
  7. JUVEDERM VOLUMA XC [Concomitant]
     Active Substance: HYALURONIC ACID\LIDOCAINE HYDROCHLORIDE
     Dosage: UNK
     Dates: start: 20150312, end: 20150312
  8. BOTOX [Suspect]
     Active Substance: ONABOTULINUMTOXINA
     Dosage: 10 UNITS, SINGLE
     Route: 030
     Dates: start: 20150427, end: 20150427
  9. BOTOX [Suspect]
     Active Substance: ONABOTULINUMTOXINA
     Dosage: 57 UNITS, SINGLE
     Route: 030
     Dates: start: 20151123, end: 20151123
  10. BOTOX [Suspect]
     Active Substance: ONABOTULINUMTOXINA
     Dosage: 35 UNITS, SINGLE
     Route: 030
     Dates: start: 20150413, end: 20150413
  11. JUVEDERM ULTRA XC [Concomitant]
     Active Substance: HYALURONIC ACID\LIDOCAINE HYDROCHLORIDE
     Indication: SKIN WRINKLING
  12. JUVEDERM VOLUMA XC [Concomitant]
     Active Substance: HYALURONIC ACID\LIDOCAINE HYDROCHLORIDE
     Dosage: UNK
     Dates: start: 20150427, end: 20150427

REACTIONS (3)
  - Off label use [Unknown]
  - Granuloma skin [Unknown]
  - Face oedema [Unknown]

NARRATIVE: CASE EVENT DATE: 20160115
